FAERS Safety Report 16274546 (Version 1)
Quarter: 2019Q2

REPORT INFORMATION
  Report Type: Spontaneous
  Country: US (occurrence: US)
  Receive Date: 20190504
  Receipt Date: 20190504
  Transmission Date: 20190711
  Serious: Yes (Other)
  Sender: FDA-Public Use
  Company Number: PHHY2019US096325

PATIENT
  Age: 28 Year
  Sex: Male

DRUGS (3)
  1. TRENBOLONE [Interacting]
     Active Substance: TRENBOLONE
     Indication: PRODUCT USED FOR UNKNOWN INDICATION
     Route: 065
  2. CLENBUTEROL [Interacting]
     Active Substance: CLENBUTEROL
     Indication: PRODUCT USED FOR UNKNOWN INDICATION
     Route: 065
  3. TESTOSTERONE. [Suspect]
     Active Substance: TESTOSTERONE
     Indication: PRODUCT USED FOR UNKNOWN INDICATION
     Route: 065

REACTIONS (12)
  - Dyspnoea [Unknown]
  - Hypokinesia [Unknown]
  - Drug interaction [Unknown]
  - Hyperthyroidism [Unknown]
  - Cardiogenic shock [Unknown]
  - Left ventricular dysfunction [Unknown]
  - Pyrexia [Unknown]
  - Tachycardia [Unknown]
  - Hypoxia [Unknown]
  - Sinus tachycardia [Unknown]
  - Pulmonary oedema [Unknown]
  - Electrocardiogram ST segment elevation [Unknown]
